FAERS Safety Report 11837958 (Version 3)
Quarter: 2016Q1

REPORT INFORMATION
  Report Type: Spontaneous
  Country: US (occurrence: US)
  Receive Date: 20151215
  Receipt Date: 20160317
  Transmission Date: 20160525
  Serious: Yes (Other)
  Sender: FDA-Public Use
  Company Number: US-GLAXOSMITHKLINE-US2015176283

PATIENT
  Age: 31 Year
  Sex: Male
  Weight: 131.97 kg

DRUGS (6)
  1. COLACE [Concomitant]
     Active Substance: DOCUSATE SODIUM
  2. MINIPRESS [Concomitant]
     Active Substance: PRAZOSIN HYDROCHLORIDE
  3. VENTOLIN HFA [Suspect]
     Active Substance: ALBUTEROL SULFATE
     Indication: PRODUCT USED FOR UNKNOWN INDICATION
     Dosage: 4 PUFF(S), UNK
     Dates: start: 20151128
  4. ALVESCO [Suspect]
     Active Substance: CICLESONIDE
     Indication: PRODUCT USED FOR UNKNOWN INDICATION
     Dosage: 4 PUFF(S), UNK
     Dates: start: 20151128
  5. ZOLOFT [Concomitant]
     Active Substance: SERTRALINE HYDROCHLORIDE
  6. LUBRIDERM [Concomitant]
     Active Substance: AVOBENZONE\HOMOSALATE\OCTISALATE\OCTOCRYLENE\OXYBENZONE

REACTIONS (46)
  - Ageusia [Not Recovered/Not Resolved]
  - Headache [Not Recovered/Not Resolved]
  - Ocular hyperaemia [Unknown]
  - Vision blurred [Unknown]
  - Cough [Unknown]
  - Syncope [Unknown]
  - Potentiating drug interaction [Unknown]
  - Skin irritation [Not Recovered/Not Resolved]
  - Wrong patient received medication [Recovered/Resolved]
  - Eye irritation [Unknown]
  - Visual impairment [Unknown]
  - Decreased appetite [Unknown]
  - Hypoacusis [Unknown]
  - Dry mouth [Unknown]
  - Pain [Unknown]
  - Abnormal behaviour [Unknown]
  - Dizziness [Unknown]
  - Fear of death [Unknown]
  - Vomiting [Unknown]
  - Oxygen saturation abnormal [Unknown]
  - Dyspnoea [Unknown]
  - Cardiac discomfort [Not Recovered/Not Resolved]
  - Hypersensitivity [Unknown]
  - Weight decreased [Unknown]
  - Loss of consciousness [Recovered/Resolved]
  - Nasal discomfort [Not Recovered/Not Resolved]
  - Pharyngeal oedema [Not Recovered/Not Resolved]
  - Condition aggravated [Unknown]
  - Adverse reaction [Unknown]
  - Feeling abnormal [Unknown]
  - Fear [Unknown]
  - Palpitations [Recovering/Resolving]
  - Hypoaesthesia oral [Unknown]
  - Lacrimation increased [Unknown]
  - Choking [Not Recovered/Not Resolved]
  - Insomnia [Recovering/Resolving]
  - Drug dispensing error [Recovered/Resolved]
  - Heart rate increased [Unknown]
  - Panic reaction [Unknown]
  - Nausea [Unknown]
  - Shock symptom [Unknown]
  - Pharyngeal hypoaesthesia [Not Recovered/Not Resolved]
  - Throat irritation [Unknown]
  - Upper respiratory tract inflammation [Unknown]
  - Musculoskeletal pain [Unknown]
  - Hypoaesthesia [Unknown]

NARRATIVE: CASE EVENT DATE: 201511
